FAERS Safety Report 22198120 (Version 1)
Quarter: 2023Q2

REPORT INFORMATION
  Report Type: Spontaneous
  Country: US (occurrence: US)
  Receive Date: 20230411
  Receipt Date: 20230411
  Transmission Date: 20230721
  Serious: No
  Sender: FDA-Public Use
  Company Number: US-JUBILANT CADISTA PHARMACEUTICALS-2022JUB00501

PATIENT
  Sex: Male
  Weight: 108.84 kg

DRUGS (1)
  1. IRBESARTAN [Suspect]
     Active Substance: IRBESARTAN
     Indication: Blood pressure management
     Dosage: 300 MG, 1X/DAY
     Route: 048
     Dates: end: 2020

REACTIONS (5)
  - Choking [Recovered/Resolved]
  - Foreign body in throat [Recovered/Resolved]
  - Cough [Recovered/Resolved]
  - Product coating issue [Recovered/Resolved]
  - Product solubility abnormal [Recovered/Resolved]
